FAERS Safety Report 10489310 (Version 1)
Quarter: 2014Q4

REPORT INFORMATION
  Report Type: Report from Study
  Country: BR (occurrence: BR)
  Receive Date: 20141002
  Receipt Date: 20141002
  Transmission Date: 20150528
  Serious: Yes (Other)
  Sender: FDA-Public Use
  Company Number: PHHY2014BR127221

PATIENT
  Sex: Male
  Weight: 120 kg

DRUGS (2)
  1. SANDOSTATIN LAR DEPOT [Suspect]
     Active Substance: OCTREOTIDE ACETATE
     Indication: ACROMEGALY
     Dosage: 1 DF(AMPOULE), EVERY 28 DAYS
  2. PURAN [Concomitant]
     Active Substance: LEVOTHYROXINE SODIUM
     Indication: THYROIDECTOMY
     Dosage: 4 DF, DAILY

REACTIONS (2)
  - Discomfort [Not Recovered/Not Resolved]
  - Inguinal hernia [Not Recovered/Not Resolved]
